FAERS Safety Report 23580485 (Version 1)
Quarter: 2024Q1

REPORT INFORMATION
  Report Type: Spontaneous
  Country: US (occurrence: US)
  Receive Date: 20240229
  Receipt Date: 20240229
  Transmission Date: 20240410
  Serious: Yes (Other)
  Sender: FDA-Public Use
  Company Number: US-SA-SAC20240227000984

PATIENT
  Sex: Female

DRUGS (12)
  1. DUPIXENT [Suspect]
     Active Substance: DUPILUMAB
     Indication: Dermatitis atopic
     Dosage: 300 MG, QOW
     Route: 058
  2. ASPIRIN [Concomitant]
     Active Substance: ASPIRIN
     Dosage: UNK
  3. CARVEDILOL [Concomitant]
     Active Substance: CARVEDILOL
     Dosage: UNK
  4. ESTRADIOL [Concomitant]
     Active Substance: ESTRADIOL
     Dosage: UNK
  5. ESTROGEL [Concomitant]
     Active Substance: ESTRADIOL
     Dosage: UNK
  6. GEMFIBROZIL [Concomitant]
     Active Substance: GEMFIBROZIL
  7. HYDROCODONE [Concomitant]
     Active Substance: HYDROCODONE
  8. MYRBETRIQ [Concomitant]
     Active Substance: MIRABEGRON
     Dosage: UNK
  9. PANTOPRAZOLE [Concomitant]
     Active Substance: PANTOPRAZOLE
     Dosage: UNK
  10. LEVOTHYROXINE [Concomitant]
     Active Substance: LEVOTHYROXINE\LEVOTHYROXINE SODIUM
  11. ROSUVASTATIN [Concomitant]
     Active Substance: ROSUVASTATIN
  12. CYCLOBENZAPRINE [Concomitant]
     Active Substance: CYCLOBENZAPRINE

REACTIONS (8)
  - Urinary bladder suspension [Unknown]
  - Depression [Unknown]
  - Dry skin [Unknown]
  - Skin fissures [Unknown]
  - Skin exfoliation [Unknown]
  - Post procedural infection [Unknown]
  - Eczema [Unknown]
  - Arthralgia [Unknown]
